FAERS Safety Report 6307058-3 (Version None)
Quarter: 2009Q3

REPORT INFORMATION
  Report Type: 
  Country: None (occurrence: None)
  Receive Date: 20090812
  Receipt Date: 20090804
  Transmission Date: 20100115
  Serious: Yes (Hospitalization, Other)
  Sender: FDA-Public Use
  Company Number: GB-BAXTER-2009BH011850

PATIENT
  Age: 53 Year
  Sex: Female
  Weight: 68 kg

DRUGS (4)
  1. DEXTROSE 5% [Suspect]
     Indication: ADENOCARCINOMA
     Route: 042
     Dates: start: 20090623, end: 20090716
  2. ELOXITAN [Suspect]
     Indication: ADENOCARCINOMA
     Route: 042
     Dates: start: 20090623, end: 20090716
  3. EPIRUBICIN [Concomitant]
     Indication: DRUG USE FOR UNKNOWN INDICATION
     Route: 042
     Dates: start: 20090716, end: 20090716
  4. CAPECITABINE [Concomitant]
     Indication: DRUG USE FOR UNKNOWN INDICATION
     Route: 048
     Dates: start: 20090101

REACTIONS (11)
  - C-REACTIVE PROTEIN INCREASED [None]
  - DIZZINESS [None]
  - FATIGUE [None]
  - HYPOPHAGIA [None]
  - NAUSEA [None]
  - PYREXIA [None]
  - RASH ERYTHEMATOUS [None]
  - TREMOR [None]
  - TYPE IV HYPERSENSITIVITY REACTION [None]
  - VOMITING [None]
  - WHITE BLOOD CELL COUNT INCREASED [None]
